FAERS Safety Report 9919833 (Version 1)
Quarter: 2014Q1

REPORT INFORMATION
  Report Type: Spontaneous
  Country: FR (occurrence: FR)
  Receive Date: 20140224
  Receipt Date: 20140224
  Transmission Date: 20141002
  Serious: Yes (Hospitalization)
  Sender: FDA-Public Use
  Company Number: FR-TEVA-463777ISR

PATIENT
  Age: 56 Year
  Sex: Female

DRUGS (41)
  1. VINCRISTINE TEVA 0,1 POUR CENT (1MG/ML) [Suspect]
     Indication: T-CELL TYPE ACUTE LEUKAEMIA
     Dosage: 2 MILLIGRAM DAILY; FIRST INDUCTION THERAPY
     Route: 041
     Dates: start: 20130621, end: 20130621
  2. VINCRISTINE TEVA 0,1 POUR CENT (1MG/ML) [Suspect]
     Dosage: CONSOLIDATION NUMBER 2
     Route: 041
     Dates: start: 20130822, end: 20130822
  3. VINCRISTINE TEVA 0,1 POUR CENT (1MG/ML) [Suspect]
     Dosage: 2 MILLIGRAM DAILY; CONSOLIDATION NUMBER  5
     Route: 041
     Dates: start: 20131014, end: 20131014
  4. VINCRISTINE TEVA 0,1 POUR CENT (1MG/ML) [Suspect]
     Dosage: DAY 1 OF SECOND INDUCTION THERAPY
     Route: 041
     Dates: start: 20131231, end: 20131231
  5. VINCRISTINE TEVA 0,1 POUR CENT (1MG/ML) [Suspect]
     Dosage: 2 MILLIGRAM DAILY; DAY 8 OF SECOND INDUCTION THERAPY
     Route: 041
     Dates: start: 20140107, end: 20140107
  6. VINCRISTINE TEVA 0,1 POUR CENT (1MG/ML) [Suspect]
     Dosage: 2 MILLIGRAM DAILY; DAY 15 OF SECOND INDUCTION THERAPY
     Route: 041
     Dates: start: 20140114, end: 20140114
  7. VINCRISTINE TEVA 0,1 POUR CENT (1MG/ML) [Suspect]
     Dosage: 2 MILLIGRAM DAILY; DAY 22 OF SECOND INDUCTION THERAPY
     Route: 041
     Dates: start: 20140121, end: 20140121
  8. ERWINASE [Suspect]
     Indication: T-CELL TYPE ACUTE LEUKAEMIA
     Dosage: 20500 IU (INTERNATIONAL UNIT) DAILY; DAY 9 OF SECOND INDUCTION THERAPY
     Route: 041
     Dates: start: 20140108, end: 20140108
  9. ERWINASE [Suspect]
     Dosage: 20500 IU (INTERNATIONAL UNIT) DAILY; DAY 11 OF SECOND INDUCTION THERAPY
     Route: 041
     Dates: start: 20140110, end: 20140110
  10. ERWINASE [Suspect]
     Dosage: 20500 IU (INTERNATIONAL UNIT) DAILY; DAY 13 OF SECOND INDUCTION THERAPY
     Route: 041
     Dates: start: 20140112, end: 20140112
  11. ERWINASE [Suspect]
     Dosage: 20500 IU (INTERNATIONAL UNIT) DAILY; DAY 21 OF SECOND INDUCTION THERAPY
     Route: 041
     Dates: start: 20140120, end: 20140120
  12. ERWINASE [Suspect]
     Dosage: 20500 IU (INTERNATIONAL UNIT) DAILY; DAY 23 OF SECOND INDUCTION THERAPY
     Route: 041
     Dates: start: 20140122, end: 20140122
  13. ERWINASE [Suspect]
     Dosage: 20500 IU (INTERNATIONAL UNIT) DAILY; DAY 25 OF SECOND INDUCTION THERAPY
     Route: 041
     Dates: start: 20140124, end: 20140124
  14. ERWINASE [Suspect]
     Dosage: 20500 IU (INTERNATIONAL UNIT) DAILY; DAY 28 OF SECOND INDUCTION THERAPY
     Route: 041
     Dates: start: 20140127, end: 20140127
  15. ERWINASE [Suspect]
     Dosage: 20500 IU (INTERNATIONAL UNIT) DAILY; DAY 30 OF SECOND INDUCTION THERAPY
     Route: 041
     Dates: start: 20140129, end: 20140129
  16. CORTANCYL 20 MG [Suspect]
     Indication: T-CELL TYPE ACUTE LEUKAEMIA
     Dosage: 100 MILLIGRAM DAILY; FIRST INDUCTION THERAPY
     Route: 048
     Dates: start: 20130621, end: 20130621
  17. CORTANCYL 20 MG [Suspect]
     Dosage: 100 MILLIGRAM DAILY; FROM DAY 1 TO DAY 13 OF SECOND INDUCTION THERAPY
     Route: 048
     Dates: start: 20131231, end: 20140112
  18. CERUBIDINE 20 MG [Suspect]
     Indication: T-CELL TYPE ACUTE LEUKAEMIA
     Dosage: 52 MILLIGRAM DAILY; FIRST INDUCTION THERAPY
     Route: 041
     Dates: start: 20130621, end: 20130621
  19. CERUBIDINE 20 MG [Suspect]
     Dosage: 52 MILLIGRAM DAILY; FROM DAY 1 TO DAY 3 OF SECOND INDUCTION THERAPY
     Route: 041
     Dates: start: 20131231, end: 20140102
  20. CERUBIDINE 20 MG [Suspect]
     Dosage: 52 MILLIGRAM DAILY; FROM DAY 15 TO DAY 16 OF SECOND INDUCTION THERAPY
     Route: 041
     Dates: start: 20140114, end: 20140115
  21. ENDOXAN 500 MG. IV [Suspect]
     Indication: T-CELL TYPE ACUTE LEUKAEMIA
     Dosage: 1300 MILLIGRAM DAILY; SECOND PART OF THE FIRST INDUCTION THERAPY
     Route: 042
     Dates: start: 20130712, end: 20130712
  22. ENDOXAN 500 MG. IV [Suspect]
     Dosage: 1300 MILLIGRAM DAILY; CONSOLIDATION NUMBER 3
     Route: 042
     Dates: start: 20130909, end: 20130909
  23. ENDOXAN 500 MG. IV [Suspect]
     Dosage: 1300 MILLIGRAM DAILY; CONSOLIDATION NUMBER 6
     Route: 042
     Dates: start: 20131104, end: 20131104
  24. ENDOXAN 500 MG. IV [Suspect]
     Dosage: 1300 MILLIGRAM DAILY; DAY 1 OF SECOND INDUCTION THERAPY
     Route: 042
     Dates: start: 20131231, end: 20131231
  25. ENDOXAN 500 MG. IV [Suspect]
     Dosage: 1300 MILLIGRAM DAILY; DAY 15 OF SECOND INDUCTION THERAPY
     Route: 042
     Dates: start: 20140114, end: 20140114
  26. LOVENOX [Concomitant]
     Dosage: .4 ML DAILY;
     Route: 058
  27. FRAGMINE [Concomitant]
     Dosage: .5 MILLIGRAM DAILY;
     Route: 058
  28. ACUPAN [Concomitant]
     Dosage: 4 DOSAGE FORMS DAILY; IF NEEDED
  29. ACUPAN [Concomitant]
     Dosage: 4 DOSAGE FORMS DAILY; IF NEEDED
  30. ACUPAN [Concomitant]
  31. ZOPHREN [Concomitant]
     Dosage: 2 DOSAGE FORMS DAILY; 2 AMPULES A DAY
  32. GRANOCYTE [Concomitant]
     Dosage: 1 DOSAGE FORMS DAILY; 1 AMPULE A DAY
  33. INEXIUM [Concomitant]
     Dosage: 1 TABLET DAILY;
     Route: 048
  34. LIPANTHYL [Concomitant]
     Dosage: 1 TABLET DAILY;
     Route: 048
  35. ZELITREX [Concomitant]
     Dosage: 1 TABLET DAILY;
     Route: 048
  36. EFFEXOR [Concomitant]
     Dosage: 1 TABLET DAILY; LONG-STANDING TREATMENT
     Route: 048
  37. WELLVONE [Concomitant]
     Dosage: 2 TABLET DAILY;
     Route: 048
     Dates: end: 20140108
  38. TRAMADOL LP [Concomitant]
     Dosage: 300 MILLIGRAM DAILY; IF NEEDED
     Route: 048
     Dates: end: 20140115
  39. PRIMPERAN [Concomitant]
     Dosage: 30 MG/ML DAILY; IF NEEDED
     Route: 048
     Dates: end: 20140102
  40. DUPHALAC [Concomitant]
     Dosage: 2 DOSAGE FORMS DAILY; IF NEEDED
     Route: 048
     Dates: start: 20140103
  41. LEXOMIL [Concomitant]
     Dosage: 1 TABLET DAILY; IF NEEDED
     Route: 048

REACTIONS (8)
  - Posterior reversible encephalopathy syndrome [Not Recovered/Not Resolved]
  - Disorientation [Unknown]
  - Hallucination [Unknown]
  - Abnormal behaviour [Unknown]
  - Electroencephalogram abnormal [Unknown]
  - Toxicity to various agents [Unknown]
  - Confusional state [Unknown]
  - Brain injury [Unknown]
